FAERS Safety Report 6712990-2 (Version None)
Quarter: 2010Q2

REPORT INFORMATION
  Report Type: 
  Country: None (occurrence: None)
  Receive Date: 20100505
  Receipt Date: 20100505
  Transmission Date: 20101027
  Serious: Yes (Other)
  Sender: FDA-Public Use
  Company Number: None

PATIENT
  Age: 50 Year
  Sex: Male
  Weight: 95.2554 kg

DRUGS (5)
  1. RITUXIMAB UNKNOWN UNKNOWN [Suspect]
     Indication: MULTIFOCAL MOTOR NEUROPATHY
     Dosage: 900MG 2 INFUSIONS IV
     Route: 042
     Dates: start: 20091007, end: 20091007
  2. RITUXIMAB UNKNOWN UNKNOWN [Suspect]
     Indication: MULTIFOCAL MOTOR NEUROPATHY
     Dosage: 900MG 2 INFUSIONS IV
     Route: 042
     Dates: start: 20091022, end: 20091022
  3. PLAQUENIL [Concomitant]
  4. LOTREL [Concomitant]
  5. POLYGAM [Concomitant]

REACTIONS (2)
  - CARCINOMA IN SITU OF PENIS [None]
  - SQUAMOUS CELL CARCINOMA OF SKIN [None]
